FAERS Safety Report 25939812 (Version 1)
Quarter: 2025Q4

REPORT INFORMATION
  Report Type: Report from Study
  Country: US (occurrence: US)
  Receive Date: 20251020
  Receipt Date: 20251020
  Transmission Date: 20260117
  Serious: Yes (Hospitalization)
  Sender: ABBVIE
  Company Number: US-ABBVIE-6505337

PATIENT
  Age: 44 Year
  Sex: Female

DRUGS (1)
  1. RINVOQ [Suspect]
     Active Substance: UPADACITINIB
     Indication: Dermatitis atopic
     Route: 048
     Dates: start: 20251013

REACTIONS (7)
  - Surgery [Unknown]
  - Off label use [Unknown]
  - Procedural pain [Not Recovered/Not Resolved]
  - Photosensitivity reaction [Unknown]
  - Immunodeficiency [Unknown]
  - Blood disorder [Unknown]
  - Migraine [Unknown]

NARRATIVE: CASE EVENT DATE: 20251001
